FAERS Safety Report 6899451-5 (Version None)
Quarter: 2010Q3

REPORT INFORMATION
  Report Type: 
  Country: None (occurrence: None)
  Receive Date: 20100803
  Receipt Date: 20091215
  Transmission Date: 20110219
  Serious: No
  Sender: FDA-Public Use
  Company Number: US-PFIZER INC-2007014425

PATIENT
  Sex: Female

DRUGS (6)
  1. LYRICA [Suspect]
     Dosage: UNK
     Dates: start: 20070220
  2. XANAX [Suspect]
     Indication: ANXIETY
     Dosage: 0.75MG EVERY MORNING AND EVERY AFTERNOON AND 1MG EVERY NIGHT
  3. AZITHROMYCIN [Suspect]
     Indication: EAR INFECTION
     Dosage: 500MG ON DAY ONE FOLLOWED BY 250MG DAILY FOR FOUR DAYS
     Route: 048
     Dates: start: 20091101
  4. BENADRYL [Concomitant]
     Dosage: UNK
  5. REMERON [Concomitant]
  6. KLONOPIN [Concomitant]

REACTIONS (11)
  - DIZZINESS [None]
  - DRUG INEFFECTIVE [None]
  - FATIGUE [None]
  - GASTROINTESTINAL DISORDER [None]
  - GASTROINTESTINAL PAIN [None]
  - INTERVERTEBRAL DISC DISORDER [None]
  - IRRITABLE BOWEL SYNDROME [None]
  - MALAISE [None]
  - NAUSEA [None]
  - NECK PAIN [None]
  - TINNITUS [None]
